FAERS Safety Report 6135428-5 (Version None)
Quarter: 2009Q1

REPORT INFORMATION
  Report Type: 
  Country: None (occurrence: None)
  Receive Date: 20090327
  Receipt Date: 20090316
  Transmission Date: 20090719
  Serious: Yes (Other)
  Sender: FDA-Public Use
  Company Number: FR-ELI_LILLY_AND_COMPANY-FR200903003739

PATIENT
  Age: 59 Year
  Sex: Female
  Weight: 70 kg

DRUGS (10)
  1. ALIMTA [Suspect]
     Indication: LUNG ADENOCARCINOMA
     Dosage: 500 MG/M2, (850 MG) DAY 1-21
     Route: 042
     Dates: start: 20081002, end: 20090128
  2. FOLIC ACID [Concomitant]
     Indication: VITAMIN SUPPLEMENTATION
  3. VITAMIN B-12 [Concomitant]
     Indication: VITAMIN SUPPLEMENTATION
  4. CORTICOSTEROID NOS [Concomitant]
     Indication: PROPHYLAXIS
  5. ONDANSETRON HCL [Concomitant]
     Indication: ANTIEMETIC SUPPORTIVE CARE
     Dosage: 8 MG, ON DAY ONE IV
     Route: 042
  6. ONDANSETRON HCL [Concomitant]
     Dosage: 8 MG, ON DAY 2 + 3
     Route: 048
  7. EMEND [Concomitant]
     Indication: ANTIEMETIC SUPPORTIVE CARE
     Dosage: DAY 1, 2,3
     Route: 048
  8. PREVISCAN [Concomitant]
     Indication: PULMONARY EMBOLISM
     Dates: start: 20060701
  9. GRANOCYTE 34 [Concomitant]
     Indication: PROPHYLAXIS
  10. GRANOCYTE 34 [Concomitant]
     Route: 058
     Dates: start: 20070101

REACTIONS (2)
  - ERYSIPELAS [None]
  - OEDEMA [None]
